FAERS Safety Report 10442208 (Version 1)
Quarter: 2014Q3

REPORT INFORMATION
  Report Type: Spontaneous
  Country: TW (occurrence: TW)
  Receive Date: 20140909
  Receipt Date: 20140909
  Transmission Date: 20150326
  Serious: Yes (Hospitalization)
  Sender: FDA-Public Use
  Company Number: PHHY2014TW109372

PATIENT
  Age: 18 Year
  Sex: Male

DRUGS (3)
  1. HYDROCORTISONE. [Suspect]
     Active Substance: HYDROCORTISONE
     Indication: ADRENOCORTICAL INSUFFICIENCY ACUTE
  2. ANTIBIOTICS [Concomitant]
     Active Substance: UNSPECIFIED INGREDIENT
  3. SODIUM CHLORIDE. [Suspect]
     Active Substance: SODIUM CHLORIDE
     Indication: FLUID REPLACEMENT

REACTIONS (6)
  - Depressed level of consciousness [Recovering/Resolving]
  - Heart rate decreased [Unknown]
  - Blood pressure decreased [Unknown]
  - Hypernatraemia [Recovered/Resolved]
  - Diabetes insipidus [Unknown]
  - Coma [Recovering/Resolving]
